FAERS Safety Report 15652659 (Version 1)
Quarter: 2018Q4

REPORT INFORMATION
  Report Type: Spontaneous
  Country: US (occurrence: US)
  Receive Date: 20181123
  Receipt Date: 20181123
  Transmission Date: 20190205
  Serious: No
  Sender: FDA-Public Use
  Company Number: US-NOVOPROD-578441

PATIENT
  Age: 63 Year
  Sex: Male

DRUGS (2)
  1. NOVOLOG [Suspect]
     Active Substance: INSULIN ASPART
     Indication: TYPE 2 DIABETES MELLITUS
     Dosage: SLIDING SCALE
     Route: 058
     Dates: start: 201706
  2. NOVOLOG [Suspect]
     Active Substance: INSULIN ASPART
     Dosage: SLIDING SCALE
     Route: 058
     Dates: start: 20180324, end: 2018

REACTIONS (7)
  - Flatulence [Recovered/Resolved]
  - Liquid product physical issue [Recovered/Resolved]
  - Liquid product physical issue [Recovered/Resolved]
  - Flatulence [Recovered/Resolved]
  - Diarrhoea [Recovered/Resolved]
  - Abdominal pain [Recovered/Resolved]
  - Abdominal pain [Recovered/Resolved]

NARRATIVE: CASE EVENT DATE: 201709
